FAERS Safety Report 19683932 (Version 4)
Quarter: 2021Q3

REPORT INFORMATION
  Report Type: Report from Study
  Country: US (occurrence: US)
  Receive Date: 20210811
  Receipt Date: 20210906
  Transmission Date: 20211014
  Serious: No
  Sender: FDA-Public Use
  Company Number: NVSC2021US177503

PATIENT
  Sex: Female

DRUGS (2)
  1. PIQRAY [Suspect]
     Active Substance: ALPELISIB
     Dosage: 250 MG, QD
     Route: 048
  2. PIQRAY [Suspect]
     Active Substance: ALPELISIB
     Indication: BREAST CANCER
     Dosage: 300 MG, QD
     Route: 048
     Dates: start: 202107

REACTIONS (6)
  - Hyperglycaemia [Unknown]
  - Impaired healing [Recovering/Resolving]
  - Urine output increased [Unknown]
  - Concomitant disease aggravated [Unknown]
  - Post procedural complication [Unknown]
  - Urinary tract infection [Unknown]
